FAERS Safety Report 9536509 (Version 1)
Quarter: 2013Q3

REPORT INFORMATION
  Report Type: Spontaneous
  Country: US (occurrence: None)
  Receive Date: 20130917
  Receipt Date: 20130917
  Transmission Date: 20140515
  Serious: Yes (Other)
  Sender: FDA-Public Use
  Company Number: None

PATIENT
  Age: 60 Year
  Sex: Female
  Weight: 72.58 kg

DRUGS (1)
  1. PRAVACHOL [Suspect]
     Indication: BLOOD CHOLESTEROL INCREASED
     Dosage: 1 PILL ONCE DAILY TAKEN BY MOUTH
     Route: 048

REACTIONS (22)
  - Sinusitis [None]
  - Eye swelling [None]
  - Vision blurred [None]
  - Eye pruritus [None]
  - Madarosis [None]
  - Alopecia [None]
  - Dry skin [None]
  - Rash erythematous [None]
  - Rash pruritic [None]
  - Dysgraphia [None]
  - Movement disorder [None]
  - Joint swelling [None]
  - Arthralgia [None]
  - Gait disturbance [None]
  - Hypoaesthesia [None]
  - Nervousness [None]
  - Agitation [None]
  - Chest pain [None]
  - Palpitations [None]
  - Asthenia [None]
  - Activities of daily living impaired [None]
  - Fatigue [None]
